FAERS Safety Report 8131763-X (Version None)
Quarter: 2012Q1

REPORT INFORMATION
  Report Type: 
  Country: None (occurrence: None)
  Receive Date: 20120103
  Receipt Date: 20110922
  Transmission Date: 20120608
  Serious: No
  Sender: FDA-Public Use
  Company Number: AE-2011-001734

PATIENT
  Age: 48 Year
  Sex: Female

DRUGS (12)
  1. CELEXA [Concomitant]
  2. CARAFATE [Concomitant]
  3. INCIVEK [Suspect]
     Dosage: 2250 MG (750 MG,3 IN 1 D)
     Dates: start: 20110909
  4. RIBAVIRIN [Concomitant]
  5. HYDROCODONE BITARTRATE [Concomitant]
  6. DEPAKOTE [Concomitant]
  7. SEROQUEL [Concomitant]
  8. PREVACID [Concomitant]
  9. PREMPRO (PROVELLA-14) [Concomitant]
  10. PEGASYS [Concomitant]
  11. NICODERM [Concomitant]
  12. TRAZODONE HCL [Concomitant]

REACTIONS (1)
  - PHARYNGITIS STREPTOCOCCAL [None]
